FAERS Safety Report 19206074 (Version 1)
Quarter: 2021Q2

REPORT INFORMATION
  Report Type: Spontaneous
  Country: US (occurrence: US)
  Receive Date: 20210503
  Receipt Date: 20210503
  Transmission Date: 20210717
  Serious: Yes (Hospitalization)
  Sender: FDA-Public Use
  Company Number: None

PATIENT
  Age: 47 Year
  Sex: Female
  Weight: 47.25 kg

DRUGS (9)
  1. PROPANOL (PROPRANOLOL HYDROCHLORIDE) [Concomitant]
     Active Substance: PROPRANOLOL HYDROCHLORIDE
  2. FISH OIL [Concomitant]
     Active Substance: FISH OIL
  3. METHYLFOLATE [Concomitant]
     Active Substance: LEVOMEFOLATE CALCIUM
  4. NP THYROID [Suspect]
     Active Substance: LEVOTHYROXINE\LIOTHYRONINE
     Indication: AUTOIMMUNE THYROIDITIS
     Dosage: ?          QUANTITY:1 TABLET(S);?
     Route: 048
     Dates: start: 20210315, end: 20210415
  5. VITAMIN B COMPLEX [Concomitant]
     Active Substance: CYANOCOBALAMIN\DEXPANTHENOL\NIACINAMIDE\PYRIDOXINE HYDROCHLORIDE\RIBOFLAVIN 5^-PHOSPHATE SODIUM\THIAMINE HYDROCHLORIDE\VITAMIN B COMPLEX
  6. ARMOUR THYROID [Concomitant]
     Active Substance: THYROID, PORCINE
  7. CALCIUM [Concomitant]
     Active Substance: CALCIUM
  8. VIT D [Concomitant]
     Active Substance: VITAMIN D NOS
  9. ADVIL [Concomitant]
     Active Substance: IBUPROFEN

REACTIONS (7)
  - Diarrhoea [None]
  - Anxiety [None]
  - Irritability [None]
  - Weight decreased [None]
  - Near death experience [None]
  - Dyspnoea [None]
  - Panic attack [None]

NARRATIVE: CASE EVENT DATE: 20210416
